FAERS Safety Report 16972919 (Version 1)
Quarter: 2019Q4

REPORT INFORMATION
  Report Type: Spontaneous
  Country: US (occurrence: US)
  Receive Date: 20191030
  Receipt Date: 20191030
  Transmission Date: 20200122
  Serious: No
  Sender: FDA-Public Use
  Company Number: US-UNITED THERAPEUTICS-UNT-2019-017873

PATIENT
  Age: 80 Year
  Sex: Female

DRUGS (1)
  1. ORENITRAM [Suspect]
     Active Substance: TREPROSTINIL
     Indication: PRODUCT USED FOR UNKNOWN INDICATION
     Dosage: 0.75 MG, BID
     Route: 048
     Dates: start: 20191002

REACTIONS (3)
  - Feeling abnormal [Unknown]
  - Drug titration error [Unknown]
  - Decreased activity [Unknown]

NARRATIVE: CASE EVENT DATE: 20191016
